FAERS Safety Report 19253457 (Version 2)
Quarter: 2021Q4

REPORT INFORMATION
  Report Type: Spontaneous
  Country: IT (occurrence: IT)
  Receive Date: 20210513
  Receipt Date: 20211025
  Transmission Date: 20220304
  Serious: Yes (Other)
  Sender: FDA-Public Use
  Company Number: IT-MLMSERVICE-20210427-2857245-1

PATIENT
  Age: 44 Year
  Sex: Female

DRUGS (1)
  1. LEVETIRACETAM [Suspect]
     Active Substance: LEVETIRACETAM
     Indication: Temporal lobe epilepsy
     Route: 065

REACTIONS (1)
  - Mental impairment [Unknown]
